FAERS Safety Report 9612242 (Version 3)
Quarter: 2013Q4

REPORT INFORMATION
  Report Type: Spontaneous
  Country: JP (occurrence: JP)
  Receive Date: 20131010
  Receipt Date: 20131122
  Transmission Date: 20140711
  Serious: Yes (Hospitalization)
  Sender: FDA-Public Use
  Company Number: JP-SA-2013SA098477

PATIENT
  Age: 42 Year
  Sex: Male

DRUGS (4)
  1. FABRAZYME [Suspect]
     Indication: FABRY^S DISEASE
     Route: 042
     Dates: start: 20130412
  2. AVAPRO [Concomitant]
     Indication: FABRY^S DISEASE
     Route: 048
     Dates: start: 20120914
  3. ONBREZ BREEZHALER [Concomitant]
     Dosage: ONBREZ INHALATIONAL CAPSULES 150 MCG
     Route: 055
     Dates: start: 20130118
  4. SPIRIVA [Concomitant]
     Route: 055
     Dates: start: 20130329

REACTIONS (4)
  - Cellulitis [Recovered/Resolved]
  - Pyrexia [Recovered/Resolved]
  - Local swelling [Recovered/Resolved]
  - Erythema [Recovered/Resolved]
